FAERS Safety Report 7087291-6 (Version None)
Quarter: 2010Q4

REPORT INFORMATION
  Report Type: 
  Country: None (occurrence: None)
  Receive Date: 20101107
  Receipt Date: 20100921
  Transmission Date: 20110411
  Serious: Yes (Other)
  Sender: FDA-Public Use
  Company Number: PHHY2010BR66505

PATIENT
  Age: 55 Year
  Sex: Female

DRUGS (14)
  1. RASILEZ HCT [Suspect]
     Dosage: 300/12.5 MG, UNK
  2. METFORMIN HCL [Concomitant]
     Dosage: 1000 MG, QD
  3. TICLOPIDINE HCL [Concomitant]
     Dosage: 250MG, 12/12 HRS
  4. LOSARTAN [Concomitant]
     Dosage: 50MG, 12/12 HRS
  5. SPIRONOLACTONE [Concomitant]
     Dosage: 100 MG, QD
  6. CLONIDINE [Concomitant]
     Dosage: 0.2 MG, BID
  7. ATENOLOL [Concomitant]
     Dosage: 50 MG, BID
  8. LOVAZA [Concomitant]
     Dosage: 1000 MG, 6 CAPSULES/DAY
  9. SITAGLIPTIN [Concomitant]
     Dosage: 100MG PER DAY
  10. DEFLAZACORT [Concomitant]
     Dosage: 6 MG, QD
  11. ATENSINA [Concomitant]
     Dosage: 0.2 MG, 12/12 HRS
  12. NEBIVOLOL [Concomitant]
     Dosage: 5MG IN THE MORNING
  13. FUROSEMIDE [Concomitant]
     Dosage: 40 MG, UNK
  14. ROSUVASTATIN [Concomitant]
     Dosage: 10 MG, UNK

REACTIONS (1)
  - PROTEINURIA [None]
